FAERS Safety Report 19625462 (Version 1)
Quarter: 2021Q3

REPORT INFORMATION
  Report Type: Spontaneous
  Country: GB (occurrence: GB)
  Receive Date: 20210729
  Receipt Date: 20210729
  Transmission Date: 20211014
  Serious: Yes (Other)
  Sender: FDA-Public Use
  Company Number: GB-LUNDBECK-DKLU3036237

PATIENT
  Age: 1 Year
  Sex: Female
  Weight: 7.45 kg

DRUGS (21)
  1. CO?AMOXICLAV PHARMANIAGA [Concomitant]
     Indication: ILL-DEFINED DISORDER
     Dosage: UNK
     Route: 065
  2. BACLOFEN. [Concomitant]
     Active Substance: BACLOFEN
     Indication: ILL-DEFINED DISORDER
     Dosage: UNK
     Route: 065
  3. CHLORAL HYDRATE [Concomitant]
     Active Substance: CHLORAL HYDRATE
     Indication: ILL-DEFINED DISORDER
     Dosage: UNK
     Route: 065
  4. CO?CARELDOPA [Concomitant]
     Active Substance: CARBIDOPA\LEVODOPA
     Indication: ILL-DEFINED DISORDER
     Dosage: UNK
     Route: 065
  5. COLECALCIFEROL [Concomitant]
     Active Substance: CHOLECALCIFEROL
     Indication: ILL-DEFINED DISORDER
     Dosage: UNK
     Route: 065
  6. DEXAMETHASONE. [Concomitant]
     Active Substance: DEXAMETHASONE
     Indication: ILL-DEFINED DISORDER
     Dosage: UNK
     Route: 065
  7. DIAZEPAM. [Concomitant]
     Active Substance: DIAZEPAM
     Indication: ILL-DEFINED DISORDER
     Dosage: UNK
     Route: 065
  8. LEVOTHYROXINE. [Concomitant]
     Active Substance: LEVOTHYROXINE
     Indication: ILL-DEFINED DISORDER
     Dosage: UNK
     Route: 065
  9. TRIHEXYPHENIDYL [Concomitant]
     Active Substance: TRIHEXYPHENIDYL
     Indication: ILL-DEFINED DISORDER
     Dosage: UNK
     Route: 065
  10. ZONISAMIDE. [Concomitant]
     Active Substance: ZONISAMIDE
     Indication: ILL-DEFINED DISORDER
     Dosage: UNK
     Route: 065
  11. DOMPERIDONE [Concomitant]
     Active Substance: DOMPERIDONE
     Indication: ILL-DEFINED DISORDER
     Dosage: UNK
     Route: 065
  12. ERYTHROMYCIN. [Concomitant]
     Active Substance: ERYTHROMYCIN
     Indication: ILL-DEFINED DISORDER
     Dosage: UNK
     Route: 065
  13. LEVETIRACETAM. [Concomitant]
     Active Substance: LEVETIRACETAM
     Indication: ILL-DEFINED DISORDER
     Dosage: UNK
     Route: 065
  14. BIOTIN [Concomitant]
     Active Substance: BIOTIN
     Indication: ILL-DEFINED DISORDER
     Dosage: UNK
     Route: 065
  15. FUROSEMIDE. [Concomitant]
     Active Substance: FUROSEMIDE
     Indication: ILL-DEFINED DISORDER
     Dosage: UNK
     Route: 065
  16. PHENYTOIN. [Concomitant]
     Active Substance: PHENYTOIN
     Indication: ILL-DEFINED DISORDER
     Dosage: UNK
     Route: 065
  17. CEFALEXIN [Concomitant]
     Active Substance: CEPHALEXIN
     Indication: ILL-DEFINED DISORDER
     Dosage: UNK
     Route: 065
  18. OMEPRAZOLE. [Concomitant]
     Active Substance: OMEPRAZOLE
     Indication: ILL-DEFINED DISORDER
     Dosage: UNK
     Route: 065
  19. PREDNISOLONE. [Concomitant]
     Active Substance: PREDNISOLONE
     Indication: ILL-DEFINED DISORDER
     Dosage: UNK
     Route: 065
  20. VIGABATRIN (FOR ORAL SOLUTION) [Suspect]
     Active Substance: VIGABATRIN
     Indication: INFANTILE SPASMS
     Dosage: UNK (INCREASING DOSE THAT REACHED 530MG BD)
     Route: 048
     Dates: start: 20210318, end: 20210721
  21. PARACETAMOL [Concomitant]
     Active Substance: ACETAMINOPHEN
     Indication: ILL-DEFINED DISORDER
     Dosage: UNK
     Route: 065

REACTIONS (1)
  - Encephalitis [Not Recovered/Not Resolved]

NARRATIVE: CASE EVENT DATE: 20210708
